FAERS Safety Report 17128683 (Version 1)
Quarter: 2019Q4

REPORT INFORMATION
  Report Type: Spontaneous
  Country: CA (occurrence: CA)
  Receive Date: 20191209
  Receipt Date: 20191209
  Transmission Date: 20200122
  Serious: Yes (Other)
  Sender: FDA-Public Use
  Company Number: CA-PFIZER INC-2019525311

PATIENT
  Age: 19 Year
  Sex: Male
  Weight: 93 kg

DRUGS (16)
  1. VALACYCLOVIR HCL [Concomitant]
     Active Substance: VALACYCLOVIR HYDROCHLORIDE
     Dosage: UNK
  2. HYDROMORPHONE HYDROCHLORIDE. [Suspect]
     Active Substance: HYDROMORPHONE HYDROCHLORIDE
     Dosage: 2 MG, EVERY 3 HOURS
     Route: 042
  3. DEXAMETHASONE. [Concomitant]
     Active Substance: DEXAMETHASONE
     Dosage: UNK
  4. ACETAZOLAMIDE. [Concomitant]
     Active Substance: ACETAZOLAMIDE
     Dosage: UNK
  5. LORAZEPAM. [Concomitant]
     Active Substance: LORAZEPAM
     Dosage: UNK
  6. PANTOPRAZOLE [Concomitant]
     Active Substance: PANTOPRAZOLE
     Dosage: UNK
  7. FENTANYL. [Suspect]
     Active Substance: FENTANYL
     Dosage: 12.5 UG, EVERY 1 HOUR
     Route: 062
  8. HYDROMORPHONE HYDROCHLORIDE. [Suspect]
     Active Substance: HYDROMORPHONE HYDROCHLORIDE
     Dosage: 0.5 MG, EVERY 1 HOUR
     Route: 042
  9. FUROSEMIDE. [Concomitant]
     Active Substance: FUROSEMIDE
     Dosage: UNK
  10. LEVETIRACETAM. [Concomitant]
     Active Substance: LEVETIRACETAM
     Dosage: UNK
  11. MANNITOL. [Concomitant]
     Active Substance: MANNITOL
     Dosage: UNK
  12. MICAFUNGINE [Concomitant]
     Active Substance: MICAFUNGIN
     Dosage: UNK
  13. TRIMETHOPRIM. [Concomitant]
     Active Substance: TRIMETHOPRIM
     Dosage: UNK
  14. BACLOFEN. [Concomitant]
     Active Substance: BACLOFEN
     Dosage: UNK
  15. PREGABALIN. [Concomitant]
     Active Substance: PREGABALIN
     Dosage: UNK
  16. QUETIAPINE. [Concomitant]
     Active Substance: QUETIAPINE
     Dosage: UNK

REACTIONS (1)
  - Allodynia [Recovered/Resolved]
